FAERS Safety Report 25710656 (Version 1)
Quarter: 2025Q3

REPORT INFORMATION
  Report Type: Other
  Country: EU (occurrence: EU)
  Receive Date: 20250821
  Receipt Date: 20250821
  Transmission Date: 20251020
  Serious: Yes (Disabling)
  Sender: KOWA PHARM
  Company Number: None

PATIENT

DRUGS (1)
  1. PITAVASTATIN [Suspect]
     Active Substance: PITAVASTATIN
     Indication: Product used for unknown indication

REACTIONS (2)
  - Gait inability [Not Recovered/Not Resolved]
  - Myopathy [Not Recovered/Not Resolved]
